FAERS Safety Report 22103994 (Version 1)
Quarter: 2023Q1

REPORT INFORMATION
  Report Type: Spontaneous
  Country: US (occurrence: US)
  Receive Date: 20230316
  Receipt Date: 20230316
  Transmission Date: 20230418
  Serious: No
  Sender: FDA-Public Use
  Company Number: US-ABBVIE-4342396

PATIENT
  Age: 72 Year
  Sex: Female

DRUGS (1)
  1. IMBRUVICA [Suspect]
     Active Substance: IBRUTINIB
     Indication: Product used for unknown indication
     Dosage: STRENGTH: 420 MG
     Route: 048
     Dates: start: 20230227

REACTIONS (4)
  - Feeling jittery [Unknown]
  - Dry skin [Unknown]
  - Skin haemorrhage [Unknown]
  - Onychoclasis [Unknown]

NARRATIVE: CASE EVENT DATE: 20230201
